FAERS Safety Report 4435096-4 (Version None)
Quarter: 2004Q3

REPORT INFORMATION
  Report Type: 
  Country: None (occurrence: None)
  Receive Date: 20040826
  Receipt Date: 20040813
  Transmission Date: 20050211
  Serious: No
  Sender: FDA-Public Use
  Company Number: 208423

PATIENT
  Age: 54 Year
  Sex: Male

DRUGS (6)
  1. AVASTIN [Suspect]
     Indication: COLORECTAL CANCER METASTATIC
     Dosage: 430 MG, Q2W, INTRAVENOUS
     Route: 042
     Dates: start: 20040412
  2. FLUOROURACIL [Concomitant]
  3. LEUCOVORIN CALCIUM [Concomitant]
  4. IRINOTECAN (IRINOTECAN HYDROCHLORIDE) [Concomitant]
  5. OXALIPLATIN [Concomitant]
  6. COUMADIN [Concomitant]

REACTIONS (7)
  - ERYTHEMA [None]
  - JUGULAR VEIN THROMBOSIS [None]
  - RASH [None]
  - SKIN DISCOLOURATION [None]
  - SUPERIOR VENA CAVAL OCCLUSION [None]
  - SWELLING FACE [None]
  - VARICOSE VEIN [None]
